FAERS Safety Report 4931397-1 (Version None)
Quarter: 2006Q1

REPORT INFORMATION
  Report Type: 
  Country: None (occurrence: None)
  Receive Date: 20060303
  Receipt Date: 20060119
  Transmission Date: 20060701
  Serious: Yes (Hospitalization)
  Sender: FDA-Public Use
  Company Number: PHBS2006GB01057

PATIENT
  Age: 79 Year
  Sex: Male

DRUGS (11)
  1. COMTESS [Suspect]
     Indication: PARKINSON'S DISEASE
     Dosage: UNK, UNK
     Route: 065
     Dates: start: 20050201, end: 20050206
  2. COMTESS [Suspect]
     Dosage: 200 MG, QD
     Route: 048
     Dates: start: 20051109
  3. COMTESS [Suspect]
     Route: 048
     Dates: start: 20051201, end: 20051206
  4. COMTESS [Suspect]
     Dosage: 200 MG, TID
     Route: 048
     Dates: start: 20051207, end: 20051230
  5. SINEMET CR [Concomitant]
     Dosage: UNK, TID
     Dates: start: 20050722
  6. SINEMET [Concomitant]
     Dates: start: 19940101
  7. WARFARIN [Concomitant]
     Dosage: 3.5 MG/D
     Dates: start: 20050209
  8. LOSARTAN POTASSIUM [Concomitant]
     Dosage: 50 MG/D
     Route: 048
  9. ROPINIROLE [Concomitant]
     Dosage: 12 MG/D
     Route: 048
     Dates: start: 20050913
  10. FRUSEMIDE [Concomitant]
     Dosage: 20 MG/D
     Route: 048
     Dates: start: 20050101
  11. AMITRIPTYLINE HCL [Concomitant]
     Dates: start: 20050201, end: 20050206

REACTIONS (8)
  - ARTHRALGIA [None]
  - BLOOD CREATININE INCREASED [None]
  - BLOOD UREA INCREASED [None]
  - C-REACTIVE PROTEIN INCREASED [None]
  - DIZZINESS [None]
  - NAUSEA [None]
  - RASH [None]
  - SWELLING [None]
